FAERS Safety Report 5286890-1 (Version None)
Quarter: 2007Q1

REPORT INFORMATION
  Report Type: 
  Country: None (occurrence: None)
  Receive Date: 20070329
  Receipt Date: 20070322
  Transmission Date: 20070707
  Serious: Yes (Hospitalization, Other)
  Sender: FDA-Public Use
  Company Number: 152579USA

PATIENT
  Age: 45 Year
  Sex: Female

DRUGS (3)
  1. COPAXONE [Suspect]
     Indication: MULTIPLE SCLEROSIS
     Dosage: 20 MG, SUBCUTANEOUS
     Route: 058
     Dates: start: 20050319, end: 20060424
  2. BACLOFEN [Concomitant]
  3. CLONAZEPAM [Concomitant]

REACTIONS (1)
  - ACUTE MYELOID LEUKAEMIA [None]
